FAERS Safety Report 6048836-8 (Version None)
Quarter: 2009Q1

REPORT INFORMATION
  Report Type: 
  Country: None (occurrence: None)
  Receive Date: 20090123
  Receipt Date: 20090116
  Transmission Date: 20090719
  Serious: Yes (Hospitalization)
  Sender: FDA-Public Use
  Company Number: US-JNJFOC-20060705358

PATIENT
  Sex: Female
  Weight: 92.53 kg

DRUGS (3)
  1. ORTHO EVRA [Suspect]
     Indication: CONTRACEPTION
     Route: 062
  2. ORTHO EVRA [Suspect]
     Indication: MENOMETRORRHAGIA
     Route: 062
  3. ORTHO EVRA [Suspect]
     Indication: DYSMENORRHOEA
     Route: 062

REACTIONS (3)
  - METRORRHAGIA [None]
  - PULMONARY EMBOLISM [None]
  - THYROID MASS [None]
